FAERS Safety Report 9736675 (Version 2)
Quarter: 2013Q4

REPORT INFORMATION
  Report Type: Spontaneous
  Country: US (occurrence: US)
  Receive Date: 20131206
  Receipt Date: 20131206
  Transmission Date: 20140711
  Serious: Yes (Hospitalization)
  Sender: FDA-Public Use
  Company Number: US-GILEAD-2009-0023213

PATIENT
  Sex: Female
  Weight: 111.13 kg

DRUGS (18)
  1. LETAIRIS [Suspect]
     Indication: PULMONARY ARTERIAL HYPERTENSION
     Route: 048
     Dates: start: 20090702
  2. ASPIRIN [Concomitant]
  3. FUROSEMIDE [Concomitant]
  4. METOLAZONE [Concomitant]
  5. MICARDIS [Concomitant]
  6. ISOSORBIDE MN [Concomitant]
  7. POTASSIUM CHLORIDE [Concomitant]
  8. FOLIC ACID [Concomitant]
  9. ALLOPURINOL [Concomitant]
  10. CALTRATE 600+D PLUS [Concomitant]
  11. TYLENOL [Concomitant]
  12. CARAFATE [Concomitant]
  13. NOVOLIN [Concomitant]
  14. OMEPRAZOLE [Concomitant]
  15. MAGNESIUM OXIDE [Concomitant]
  16. FISH OIL [Concomitant]
  17. VITAMIN D [Concomitant]
  18. FLAXSEED OIL [Concomitant]

REACTIONS (3)
  - Fluid retention [Unknown]
  - Dyspepsia [Unknown]
  - Dyspnoea [Unknown]
